FAERS Safety Report 19613528 (Version 1)
Quarter: 2021Q3

REPORT INFORMATION
  Report Type: Spontaneous
  Country: US (occurrence: US)
  Receive Date: 20210726
  Receipt Date: 20210726
  Transmission Date: 20211014
  Serious: No
  Sender: FDA-Public Use
  Company Number: None

PATIENT
  Age: 72 Year
  Sex: Male
  Weight: 114.76 kg

DRUGS (1)
  1. APIXABAN (APIXABAN 2.5MG TAB) [Suspect]
     Active Substance: APIXABAN
     Indication: ATRIAL FIBRILLATION
     Route: 048
     Dates: start: 20190201, end: 20210713

REACTIONS (4)
  - Cardiac failure [None]
  - Anaemia [None]
  - Haemorrhoidal haemorrhage [None]
  - Renal failure [None]

NARRATIVE: CASE EVENT DATE: 20210527
